FAERS Safety Report 25578333 (Version 1)
Quarter: 2025Q3

REPORT INFORMATION
  Report Type: Spontaneous
  Country: US (occurrence: US)
  Receive Date: 20250718
  Receipt Date: 20250718
  Transmission Date: 20251021
  Serious: No
  Sender: PFIZER
  Company Number: US-PFIZER INC-PV202500086338

PATIENT

DRUGS (1)
  1. RIFABUTIN [Suspect]
     Active Substance: RIFABUTIN

REACTIONS (1)
  - Drug intolerance [Unknown]
